FAERS Safety Report 9705628 (Version 2)
Quarter: 2013Q4

REPORT INFORMATION
  Report Type: Spontaneous
  Country: US (occurrence: US)
  Receive Date: 20131122
  Receipt Date: 20131122
  Transmission Date: 20140711
  Serious: Yes (Other)
  Sender: FDA-Public Use
  Company Number: US-GILEAD-2008-0017117

PATIENT
  Sex: Female

DRUGS (9)
  1. LETAIRIS [Suspect]
     Indication: PULMONARY ARTERIAL HYPERTENSION
     Route: 048
     Dates: start: 20080626, end: 20080626
  2. ISOSORBIDE [Concomitant]
  3. LISINOPRIL [Concomitant]
  4. VYTORIN [Concomitant]
  5. ASPIR-81 [Concomitant]
  6. FUROSEMIDE [Concomitant]
     Indication: OEDEMA
  7. JANUVIA [Concomitant]
  8. NOVOLOG [Concomitant]
  9. LANTUS [Concomitant]

REACTIONS (1)
  - Localised oedema [Not Recovered/Not Resolved]
